FAERS Safety Report 8065450-3 (Version None)
Quarter: 2011Q4

REPORT INFORMATION
  Report Type: 
  Country: None (occurrence: None)
  Receive Date: 20111221
  Receipt Date: 20110718
  Transmission Date: 20120403
  Serious: Yes (Other)
  Sender: FDA-Public Use
  Company Number: PHHY2011US58540

PATIENT
  Age: 49 Year
  Sex: Female

DRUGS (1)
  1. EXJADE [Suspect]
     Dosage: 1500 MG, QD, ORAL
     Route: 048
     Dates: start: 20110614

REACTIONS (3)
  - DIARRHOEA HAEMORRHAGIC [None]
  - BLOOD ALKALINE PHOSPHATASE INCREASED [None]
  - SOMNAMBULISM [None]
